FAERS Safety Report 7078479-9 (Version None)
Quarter: 2010Q4

REPORT INFORMATION
  Report Type: 
  Country: None (occurrence: None)
  Receive Date: 20101102
  Receipt Date: 20101022
  Transmission Date: 20110411
  Serious: Yes (Hospitalization)
  Sender: FDA-Public Use
  Company Number: IT-TEVA-253373ISR

PATIENT
  Sex: Male

DRUGS (6)
  1. LORAZEPAM [Suspect]
     Indication: MENTAL DISORDER
     Route: 048
     Dates: start: 20100601, end: 20101015
  2. CLOTIAPINE [Suspect]
     Indication: MENTAL DISORDER
     Dosage: 100 MG/ML, DAILY DOSE: 20 DROPS
     Route: 048
     Dates: start: 20100810, end: 20101015
  3. GABAPENTIN [Suspect]
     Indication: NEURALGIA
     Route: 048
     Dates: start: 20100601, end: 20101015
  4. QUETIAPINE [Suspect]
     Indication: MENTAL DISORDER
     Route: 048
     Dates: start: 20100601, end: 20101015
  5. FLURAZEPAM HYDROCHLORIDE [Suspect]
     Indication: MENTAL DISORDER
     Route: 048
     Dates: start: 20100601, end: 20101015
  6. SERTRALINE HYDROCHLORIDE [Suspect]
     Indication: MENTAL DISORDER
     Route: 048
     Dates: start: 20100601, end: 20101015

REACTIONS (1)
  - URINARY RETENTION [None]
